FAERS Safety Report 7892623-2 (Version None)
Quarter: 2011Q4

REPORT INFORMATION
  Report Type: 
  Country: None (occurrence: None)
  Receive Date: 20111019
  Receipt Date: 20111010
  Transmission Date: 20120403
  Serious: Yes (Other)
  Sender: FDA-Public Use
  Company Number: 2011029991

PATIENT
  Age: 68 Year
  Sex: Male
  Weight: 87.0906 kg

DRUGS (5)
  1. HIZENTRA [Suspect]
     Indication: HYPOGLOBULINAEMIA
     Dosage: 8 G 1/WEEK, 40 ML VIA 3 SITES OVER 1 HOUR 28 MINUTES SUBCUTANEOUS
     Route: 058
     Dates: start: 20110331
  2. HIZENTRA [Suspect]
     Indication: HYPOGAMMAGLOBULINAEMIA
     Dosage: 8 G 1/WEEK, 40 ML VIA 3 SITES OVER 1 HOUR 28 MINUTES SUBCUTANEOUS
     Route: 058
     Dates: start: 20110331
  3. HIZENTRA [Suspect]
     Indication: IMMUNODEFICIENCY COMMON VARIABLE
     Dosage: 8 G 1/WEEK, 40 ML VIA 3 SITES OVER 1 HOUR 28 MINUTES SUBCUTANEOUS
     Route: 058
     Dates: start: 20110331
  4. HIZENTRA [Suspect]
     Indication: IMMUNODEFICIENCY
     Dosage: 8 G 1/WEEK, 40 ML VIA 3 SITES OVER 1 HOUR 28 MINUTES SUBCUTANEOUS
     Route: 058
     Dates: start: 20110331
  5. WELLBUTRIN [Concomitant]

REACTIONS (2)
  - SINUSITIS [None]
  - UPPER RESPIRATORY TRACT INFECTION [None]
